FAERS Safety Report 7722329-1 (Version None)
Quarter: 2011Q3

REPORT INFORMATION
  Report Type: 
  Country: None (occurrence: None)
  Receive Date: 20110831
  Receipt Date: 20110826
  Transmission Date: 20111222
  Serious: Yes (Hospitalization)
  Sender: FDA-Public Use
  Company Number: US-ABBOTT-11P-163-0849754-00

PATIENT
  Age: 87 Year
  Sex: Female
  Weight: 77.18 kg

DRUGS (4)
  1. AMBIEN [Suspect]
     Indication: PRODUCT USED FOR UNKNOWN INDICATION
  2. SUNITINIB MALATE [Suspect]
     Indication: METASTATIC RENAL CELL CARCINOMA
     Dosage: 1 X/DAY FOR 28 DAYS, EVERY 6 WEEKS
     Route: 048
     Dates: start: 20080219
  3. VICODIN [Suspect]
     Indication: PRODUCT USED FOR UNKNOWN INDICATION
  4. FLEXERIL [Suspect]
     Indication: PRODUCT USED FOR UNKNOWN INDICATION

REACTIONS (3)
  - DYSARTHRIA [None]
  - VIITH NERVE PARALYSIS [None]
  - HYPERTENSIVE EMERGENCY [None]
